FAERS Safety Report 9238039 (Version 1)
Quarter: 2013Q1

REPORT INFORMATION
  Report Type: Spontaneous
  Country: US (occurrence: None)
  Receive Date: 20121107
  Receipt Date: 20121107
  Transmission Date: 20140127
  Serious: No
  Sender: FDA-Public Use
  Company Number: 2012HGS-003889

PATIENT
  Age: 46 Year
  Sex: Female

DRUGS (4)
  1. BENLYSTA [Suspect]
     Indication: SYSTEMIC LUPUS ERYTHEMATOSUS
     Dosage: 1 IN 28 D, INTRAVENOUS DRIP
     Route: 041
     Dates: start: 20120401
  2. PLAQUENIL(HYDROXYCHLOROQUINE PHOSPHATE) (HYDROXYCHLOROQUINE PHOSPHATE) [Concomitant]
  3. MELOXICAM(MELOXICAM) (MELOXICAM) [Concomitant]
  4. PREDNISONE(PREDNISONE) (PREDNISONE) [Concomitant]

REACTIONS (2)
  - Fungal infection [None]
  - Infection [None]
